FAERS Safety Report 4600951-9 (Version None)
Quarter: 2005Q1

REPORT INFORMATION
  Report Type: 
  Country: None (occurrence: None)
  Receive Date: 20050204
  Receipt Date: 20040923
  Transmission Date: 20050727
  Serious: Yes (Death, Hospitalization)
  Sender: FDA-Public Use
  Company Number: PHEH2004US09767

PATIENT
  Age: 51 Year
  Sex: Male

DRUGS (8)
  1. CLOZARIL [Suspect]
     Indication: SCHIZOPHRENIA
     Dosage: 300 MG, TID, ORAL
     Route: 048
     Dates: start: 20041206, end: 20040821
  2. IRON (IRON) [Concomitant]
  3. DOCUSATE (DOCUSATE) [Concomitant]
  4. HALDOL DECANOATE (HALOPERIDOL DECANOTE) [Concomitant]
  5. SYNTHROID [Concomitant]
  6. DEPAKOTE [Concomitant]
  7. COGENTIN [Concomitant]
  8. ACETYLSALICYLIC ACID SRT [Concomitant]

REACTIONS (10)
  - ACUTE RESPIRATORY DISTRESS SYNDROME [None]
  - DELIRIUM [None]
  - DYSPNOEA [None]
  - HYPERHIDROSIS [None]
  - INTESTINAL OBSTRUCTION [None]
  - LEUKOCYTOSIS [None]
  - PULMONARY EMBOLISM [None]
  - RENAL FAILURE [None]
  - RESPIRATORY DISTRESS [None]
  - VOMITING [None]
